FAERS Safety Report 9670309 (Version 1)
Quarter: 2013Q4

REPORT INFORMATION
  Report Type: Spontaneous
  Country: TN (occurrence: None)
  Receive Date: 20131029
  Receipt Date: 20131029
  Transmission Date: 20140711
  Serious: Yes (Death)
  Sender: FDA-Public Use
  Company Number: 2013038567

PATIENT
  Age: 56 Year
  Sex: Female

DRUGS (1)
  1. IMMUNOGLOBULIN [Suspect]
     Indication: POLYNEUROPATHY IN MALIGNANT DISEASE
     Dosage: INTRAVENOUS (NOT OTHERWISE SPECIFIED)
     Route: 042

REACTIONS (1)
  - Drug ineffective for unapproved indication [None]
